FAERS Safety Report 12974923 (Version 1)
Quarter: 2016Q4

REPORT INFORMATION
  Report Type: Other
  Country: CA (occurrence: CA)
  Receive Date: 20161125
  Receipt Date: 20161125
  Transmission Date: 20170207
  Serious: Yes (Other)
  Sender: FDA-Public Use
  Company Number: CA-APOTEX-2016AP014731

PATIENT
  Age: 54 Year
  Sex: Female
  Weight: 62 kg

DRUGS (2)
  1. APO-TOBRAMYCIN [Suspect]
     Active Substance: TOBRAMYCIN
     Indication: DACRYOCANALICULITIS
     Dosage: 1 DF, TOTAL
     Route: 065
  2. APO-TOBRAMYCIN [Suspect]
     Active Substance: TOBRAMYCIN
     Indication: EYE ABSCESS
     Dosage: UNK
     Route: 065

REACTIONS (7)
  - Lip swelling [Recovered/Resolved]
  - Pruritus [Recovered/Resolved]
  - Blood pressure decreased [Recovered/Resolved]
  - Throat irritation [Recovered/Resolved]
  - Vulvovaginal pruritus [Recovered/Resolved]
  - Swelling [Recovered/Resolved]
  - Oedema mouth [Recovered/Resolved]
